FAERS Safety Report 7469362-5 (Version None)
Quarter: 2011Q2

REPORT INFORMATION
  Report Type: 
  Country: None (occurrence: None)
  Receive Date: 20110510
  Receipt Date: 20110404
  Transmission Date: 20111010
  Serious: Yes (Other)
  Sender: FDA-Public Use
  Company Number: US-BAYER-201033295NA

PATIENT
  Age: 30 Year
  Sex: Female
  Weight: 122.45 kg

DRUGS (3)
  1. IMITREX [Concomitant]
  2. YAZ [Suspect]
     Indication: PRODUCT USED FOR UNKNOWN INDICATION
     Dosage: UNK UNK, UNK
     Route: 048
     Dates: start: 20050101
  3. YASMIN [Suspect]
     Indication: PRODUCT USED FOR UNKNOWN INDICATION
     Route: 048
     Dates: start: 20070701

REACTIONS (3)
  - GALLBLADDER DISORDER [None]
  - CONVULSION [None]
  - CHOLELITHIASIS [None]
